FAERS Safety Report 4284767-1 (Version None)
Quarter: 2004Q1

REPORT INFORMATION
  Report Type: 
  Country: None (occurrence: None)
  Receive Date: 20040202
  Receipt Date: 20040119
  Transmission Date: 20041129
  Serious: Yes (Death)
  Sender: FDA-Public Use
  Company Number: 2004003309

PATIENT
  Age: 26 Year
  Sex: Male

DRUGS (2)
  1. ZIPRASIDONE (CAPS) (ZIPRASIDONE) [Suspect]
     Indication: SCHIZOPHRENIA
     Dosage: 120 MG (BID), ORAL
     Route: 048
     Dates: start: 20030601, end: 20040101
  2. UNSPECIFIED BENZODIAZEPRINE [Concomitant]

REACTIONS (1)
  - COMPLETED SUICIDE [None]
